FAERS Safety Report 8201094-8 (Version None)
Quarter: 2012Q1

REPORT INFORMATION
  Report Type: 
  Country: None (occurrence: None)
  Receive Date: 20120312
  Receipt Date: 20120111
  Transmission Date: 20120608
  Serious: No
  Sender: FDA-Public Use
  Company Number: US-ABBOTT-12P-163-0892702-00

PATIENT
  Sex: Female
  Weight: 69.008 kg

DRUGS (2)
  1. NORETHINDRONE [Concomitant]
     Indication: PRODUCT USED FOR UNKNOWN INDICATION
     Dates: start: 20120101
  2. LUPRON DEPOT [Suspect]
     Indication: ENDOMETRIOSIS
     Route: 030
     Dates: start: 20120106, end: 20120106

REACTIONS (6)
  - BACK PAIN [None]
  - ARTHRALGIA [None]
  - VOMITING [None]
  - CHEST PAIN [None]
  - NAUSEA [None]
  - ARRHYTHMIA [None]
